FAERS Safety Report 7274790-7 (Version None)
Quarter: 2011Q1

REPORT INFORMATION
  Report Type: 
  Country: None (occurrence: None)
  Receive Date: 20110204
  Receipt Date: 20110131
  Transmission Date: 20110831
  Serious: Yes (Death, Hospitalization, Other)
  Sender: FDA-Public Use
  Company Number: JP-SANOFI-AVENTIS-2011SA005856

PATIENT
  Sex: Male
  Weight: 53.4 kg

DRUGS (3)
  1. ESTRAMUSTINE [Suspect]
     Dosage: ORAL ESTRAMUSTINE 560 MG PER DAY DURING DAYS 1-3 AND DAYS 8-10
     Route: 048
     Dates: start: 20070101
  2. DOCETAXEL [Suspect]
     Dosage: IN APPROX 2007, THE PATIENT RECEIVED DOCETAXEL INFUSION ONCE A WEEK FOR TWO WEEKS (DAYS 1 AND 8)
     Route: 065
     Dates: start: 20070101
  3. DEXAMETHASONE [Suspect]
     Dosage: IN APPROXMATELY 2007, THE PATIENT STARTED TREATMENT WITH DEXAMETHASONE
     Route: 048
     Dates: start: 20070101

REACTIONS (14)
  - HYPOPHAGIA [None]
  - MULTI-ORGAN FAILURE [None]
  - EYE DISCHARGE [None]
  - NICOTINIC ACID DEFICIENCY [None]
  - ANAEMIA [None]
  - NAUSEA [None]
  - FATIGUE [None]
  - RENAL IMPAIRMENT [None]
  - WEIGHT DECREASED [None]
  - CHOLELITHIASIS [None]
  - DECREASED APPETITE [None]
  - CONDITION AGGRAVATED [None]
  - HEPATIC FUNCTION ABNORMAL [None]
  - RASH [None]
